FAERS Safety Report 6958173-2 (Version None)
Quarter: 2010Q3

REPORT INFORMATION
  Report Type: 
  Country: None (occurrence: None)
  Receive Date: 20100831
  Receipt Date: 20100819
  Transmission Date: 20110219
  Serious: Yes (Hospitalization, Other)
  Sender: FDA-Public Use
  Company Number: JP-PFIZER INC-2010095529

PATIENT
  Age: 75 Year
  Sex: Male
  Weight: 61 kg

DRUGS (7)
  1. CHAMPIX [Suspect]
     Indication: SMOKING CESSATION THERAPY
     Dosage: 0.5 MG, 1X/DAY
     Route: 048
     Dates: start: 20090218, end: 20090220
  2. CHAMPIX [Suspect]
     Dosage: 0.5 MG, 2X/DAY
     Route: 048
     Dates: start: 20090221, end: 20090224
  3. CHAMPIX [Suspect]
     Dosage: 1 MG, 2X/DAY
     Route: 048
     Dates: start: 20090225, end: 20090301
  4. PONCIL FP [Concomitant]
     Indication: TINEA PEDIS
     Dosage: UNK
     Route: 061
     Dates: start: 20081229, end: 20090626
  5. LAMISIL [Concomitant]
     Indication: TINEA PEDIS
     Dosage: UNK
     Route: 061
     Dates: start: 20081229, end: 20090819
  6. SAHNE [Concomitant]
     Indication: TINEA PEDIS
     Dosage: UNK
     Route: 061
     Dates: start: 20081229, end: 20090626
  7. CLOBETASOL PROPIONATE [Concomitant]
     Indication: TINEA PEDIS
     Dosage: UNK
     Route: 061
     Dates: start: 20081229, end: 20090626

REACTIONS (3)
  - DECREASED APPETITE [None]
  - HYPONATRAEMIA [None]
  - INAPPROPRIATE ANTIDIURETIC HORMONE SECRETION [None]
